FAERS Safety Report 6930441-X (Version None)
Quarter: 2010Q3

REPORT INFORMATION
  Report Type: 
  Country: None (occurrence: None)
  Receive Date: 20100813
  Receipt Date: 20100730
  Transmission Date: 20110219
  Serious: Yes (Hospitalization)
  Sender: FDA-Public Use
  Company Number: TCI2010A003041

PATIENT
  Age: 60 Year
  Sex: Male

DRUGS (3)
  1. ROZEREM [Suspect]
     Indication: INSOMNIA
     Dosage: 8 MG (8 MG,1 IN 1 D) PER ORAL
     Route: 048
     Dates: start: 20100716, end: 20100716
  2. CORTICOSTEROIDS [Concomitant]
  3. ANTI-ASTHMATICS [Concomitant]

REACTIONS (2)
  - ASTHMA [None]
  - CONDITION AGGRAVATED [None]
